FAERS Safety Report 5416949-7 (Version None)
Quarter: 2007Q3

REPORT INFORMATION
  Report Type: 
  Country: None (occurrence: None)
  Receive Date: 20070816
  Receipt Date: 20070806
  Transmission Date: 20080115
  Serious: Yes (Death, Hospitalization, Other)
  Sender: FDA-Public Use
  Company Number: US-PFIZER INC-2007065621

PATIENT
  Sex: Male

DRUGS (7)
  1. NORVASC [Suspect]
  2. COREG [Suspect]
     Indication: CARDIAC DISORDER
     Dosage: DAILY DOSE:12.5MG-TEXT:12.5 MG DAILY
     Route: 048
     Dates: start: 20070601, end: 20070601
  3. METOPROLOL TARTRATE [Suspect]
  4. INSULIN [Concomitant]
  5. TAMSULOSIN HCL [Concomitant]
  6. ANTICOAGULANTS [Concomitant]
  7. CARDIOVASCULAR SYSTEM DRUGS [Concomitant]

REACTIONS (3)
  - CHEST PAIN [None]
  - DEATH [None]
  - VASCULAR GRAFT [None]
